FAERS Safety Report 8111492-9 (Version None)
Quarter: 2012Q1

REPORT INFORMATION
  Report Type: 
  Country: None (occurrence: None)
  Receive Date: 20120203
  Receipt Date: 20120131
  Transmission Date: 20120608
  Serious: Yes (Death, Life-Threatening, Hospitalization, Other)
  Sender: FDA-Public Use
  Company Number: DE-BRISTOL-MYERS SQUIBB COMPANY-16197402

PATIENT
  Age: 68 Year
  Sex: Female
  Weight: 100 kg

DRUGS (6)
  1. CYTARABINE [Suspect]
     Indication: ACUTE MYELOID LEUKAEMIA
     Dosage: INTERRUPTED ON 18SEP2011 DAY 5: 18SEP11
     Dates: start: 20110914
  2. TRETINOIN [Suspect]
     Indication: ACUTE MYELOID LEUKAEMIA
     Dosage: 19SEP-21SEP11,90MG 22SEP-01OCT11,30MG
     Dates: start: 20110919
  3. IDARUBICIN HCL [Suspect]
     Indication: ACUTE MYELOID LEUKAEMIA
     Dosage: DAY 3 16-SEP-2011
     Dates: start: 20110914
  4. ETOPOSIDE [Suspect]
     Indication: ACUTE MYELOID LEUKAEMIA
     Dosage: INTERRUPTED ON 16SEP2011
     Dates: start: 20110914
  5. GEMTUZUMAB OZOGAMICIN [Suspect]
     Indication: ACUTE MYELOID LEUKAEMIA
     Dosage: INTERRUPTED ON 14SEP2011
     Dates: start: 20110904
  6. NEULASTA [Suspect]
     Indication: ACUTE MYELOID LEUKAEMIA
     Dosage: INTERRUPTED ON 02OCT2011,CYCLE INDUCTION 2
     Dates: start: 20110923

REACTIONS (5)
  - VENOOCCLUSIVE LIVER DISEASE [None]
  - MULTI-ORGAN FAILURE [None]
  - PSEUDOMONAL SEPSIS [None]
  - RENAL FAILURE [None]
  - NEUTROPENIA [None]
